FAERS Safety Report 15096745 (Version 3)
Quarter: 2018Q3

REPORT INFORMATION
  Report Type: Spontaneous
  Country: US (occurrence: US)
  Receive Date: 20180702
  Receipt Date: 20180921
  Transmission Date: 20181010
  Serious: Yes (Other)
  Sender: FDA-Public Use
  Company Number: US-IGSA-SR10005663

PATIENT
  Age: 65 Year
  Sex: Female

DRUGS (2)
  1. MYCOPHENOLIC ACID. [Concomitant]
     Active Substance: MYCOPHENOLIC ACID
  2. HUMAN NORMAL IMMUNOGLOBULIN (IV) [Suspect]
     Active Substance: HUMAN IMMUNOGLOBULIN G
     Indication: MYASTHENIA GRAVIS
     Dosage: 2000 MG/KG, Q.M.T.
     Route: 042

REACTIONS (1)
  - Glomerular filtration rate decreased [Not Recovered/Not Resolved]
